FAERS Safety Report 7617382-X (Version None)
Quarter: 2011Q3

REPORT INFORMATION
  Report Type: 
  Country: None (occurrence: None)
  Receive Date: 20110718
  Receipt Date: 20110713
  Transmission Date: 20111222
  Serious: Yes (Other)
  Sender: FDA-Public Use
  Company Number: US-PFIZER INC-2011158614

PATIENT
  Sex: Female

DRUGS (3)
  1. ASPIRIN [Suspect]
     Dosage: UNK
     Dates: end: 20110101
  2. AMIODARONE HCL [Suspect]
     Dosage: UNK
     Dates: start: 20110503, end: 20110101
  3. COUMADIN [Suspect]
     Dosage: UNK
     Dates: end: 20110101

REACTIONS (3)
  - DRUG HYPERSENSITIVITY [None]
  - VOMITING [None]
  - RECTAL HAEMORRHAGE [None]
